FAERS Safety Report 15390355 (Version 1)
Quarter: 2018Q3

REPORT INFORMATION
  Report Type: Spontaneous
  Country: US (occurrence: US)
  Receive Date: 20180908
  Receipt Date: 20180908
  Transmission Date: 20181010
  Serious: Yes (Life-Threatening)
  Sender: FDA-Public Use
  Company Number: None

PATIENT
  Age: 23 Year
  Sex: Female
  Weight: 59.85 kg

DRUGS (2)
  1. KYLEENA [Concomitant]
     Active Substance: LEVONORGESTREL
  2. OCELLA [Suspect]
     Active Substance: DROSPIRENONE\ETHINYL ESTRADIOL
     Indication: CONTRACEPTION
     Dosage: ?          QUANTITY:1 DF DOSAGE FORM;?
     Route: 048
     Dates: start: 20160316, end: 20180523

REACTIONS (2)
  - Pulmonary infarction [None]
  - Pulmonary embolism [None]

NARRATIVE: CASE EVENT DATE: 20180523
